FAERS Safety Report 21281935 (Version 1)
Quarter: 2022Q3

REPORT INFORMATION
  Report Type: Spontaneous
  Country: US (occurrence: US)
  Receive Date: 20220901
  Receipt Date: 20220901
  Transmission Date: 20221027
  Serious: No
  Sender: FDA-Public Use
  Company Number: US-ABBVIE-22K-163-4508419-00

PATIENT
  Sex: Female

DRUGS (1)
  1. HUMIRA [Suspect]
     Active Substance: ADALIMUMAB
     Indication: Product used for unknown indication
     Route: 058

REACTIONS (7)
  - Multiple fractures [Unknown]
  - Bone disorder [Unknown]
  - Injection site erythema [Unknown]
  - Injection site pain [Unknown]
  - Injection site papule [Unknown]
  - Injection site irritation [Unknown]
  - Wrong technique in product usage process [Not Recovered/Not Resolved]
